FAERS Safety Report 7397859-5 (Version None)
Quarter: 2011Q2

REPORT INFORMATION
  Report Type: 
  Country: None (occurrence: None)
  Receive Date: 20110406
  Receipt Date: 20110329
  Transmission Date: 20111010
  Serious: Yes (Other)
  Sender: FDA-Public Use
  Company Number: US-PFIZER INC-2011070645

PATIENT
  Age: 20 Year

DRUGS (1)
  1. MYLOTARG [Suspect]
     Dosage: UNK

REACTIONS (3)
  - BONE MARROW TRANSPLANT [None]
  - ACUTE MYELOID LEUKAEMIA [None]
  - DISEASE RECURRENCE [None]
